FAERS Safety Report 4654756-3 (Version None)
Quarter: 2005Q2

REPORT INFORMATION
  Report Type: 
  Country: None (occurrence: None)
  Receive Date: 20050505
  Receipt Date: 20050505
  Transmission Date: 20051028
  Serious: Yes (Other)
  Sender: FDA-Public Use
  Company Number: None

PATIENT
  Age: 61 Year
  Sex: Female
  Weight: 62 kg

DRUGS (8)
  1. REMODULIN [Suspect]
     Indication: PULMONARY HYPERTENSION
     Dosage: 12NG/KG/MIN   CONTINUOUS  SUBCUTANEO
     Route: 058
     Dates: start: 20050105, end: 20050404
  2. TYLENOL W/ CODEINE NO. 3 [Concomitant]
  3. ZOLOFT [Concomitant]
  4. VIAGRA [Concomitant]
  5. IMODIUM [Concomitant]
  6. COUMADIN [Concomitant]
  7. AVAPRO [Concomitant]
  8. SYNTHROID [Concomitant]

REACTIONS (7)
  - CELLULITIS [None]
  - CONTUSION [None]
  - INJECTION SITE ERYTHEMA [None]
  - INJECTION SITE PAIN [None]
  - MOBILITY DECREASED [None]
  - RASH [None]
  - SWELLING [None]
